FAERS Safety Report 7251300-1 (Version None)
Quarter: 2011Q1

REPORT INFORMATION
  Report Type: 
  Country: None (occurrence: None)
  Receive Date: 20110128
  Receipt Date: 20110124
  Transmission Date: 20110831
  Serious: Yes (Hospitalization)
  Sender: FDA-Public Use
  Company Number: SI-GENZYME-FABR-1001766

PATIENT
  Sex: Male
  Weight: 62 kg

DRUGS (9)
  1. LACIDIPINE [Concomitant]
     Indication: CEREBROVASCULAR DISORDER
     Dosage: 6 MG, UNK
     Dates: start: 20100101
  2. ESCITALOPRAM [Concomitant]
     Indication: MENTAL DISORDER
     Dosage: UNK
     Dates: start: 20100101
  3. CALCIUM CARBONATE [Concomitant]
     Indication: RENAL DISORDER
     Dosage: UNK
     Dates: start: 20040101
  4. FABRAZYME [Suspect]
     Indication: FABRY'S DISEASE
     Dosage: 35 MG, Q2W
     Route: 042
     Dates: start: 20031008
  5. ASPIRIN [Concomitant]
     Indication: CEREBROVASCULAR DISORDER
     Dosage: 100 MG, QD
     Dates: start: 20090101
  6. RAMIPRIL [Concomitant]
     Indication: CEREBROVASCULAR DISORDER
     Dosage: 10 MG, UNK
     Dates: start: 20040101
  7. LANTHANUM CARBONATE [Concomitant]
     Indication: RENAL DISORDER
     Dosage: 500 MG, UNK
     Dates: start: 20100101
  8. LEVOTHYROXINE SODIUM [Concomitant]
     Indication: ENDOCRINE DISORDER
     Dosage: UNK
     Dates: start: 20100101
  9. DIOSMIN [Concomitant]
     Indication: CEREBROVASCULAR DISORDER
     Dosage: UNK
     Dates: start: 20090101

REACTIONS (3)
  - SEPSIS [None]
  - RENAL DISORDER [None]
  - KIDNEY TRANSPLANT REJECTION [None]
